FAERS Safety Report 4970644-7 (Version None)
Quarter: 2006Q2

REPORT INFORMATION
  Report Type: 
  Country: None (occurrence: None)
  Receive Date: 20060412
  Receipt Date: 20060404
  Transmission Date: 20061013
  Serious: Yes (Disabling, Other)
  Sender: FDA-Public Use
  Company Number: US-MERCK-0604USA01030

PATIENT
  Sex: Female

DRUGS (1)
  1. VIOXX [Suspect]
     Route: 048
     Dates: start: 20010101

REACTIONS (7)
  - BLINDNESS UNILATERAL [None]
  - CARDIAC DISORDER [None]
  - EMOTIONAL DISORDER [None]
  - FEAR [None]
  - MYOCARDIAL INFARCTION [None]
  - PAIN [None]
  - RETINAL VEIN THROMBOSIS [None]
